FAERS Safety Report 5048751-2 (Version None)
Quarter: 2006Q3

REPORT INFORMATION
  Report Type: 
  Country: None (occurrence: None)
  Receive Date: 20060705
  Receipt Date: 20060623
  Transmission Date: 20061208
  Serious: Yes (Hospitalization, Other)
  Sender: FDA-Public Use
  Company Number: HQWYE349515MAY06

PATIENT
  Age: 28 Year
  Sex: Male

DRUGS (6)
  1. NEORAL [Suspect]
     Indication: PROPHYLAXIS AGAINST TRANSPLANT REJECTION
     Dosage: 350 MG 1X PER 1 DAY, ORAL
     Route: 048
     Dates: start: 20060308
  2. MYCOPHENOLATE MOFETIL [Suspect]
     Indication: PROPHYLAXIS AGAINST TRANSPLANT REJECTION
     Dosage: 1000 MG 1X PER 1 DAY,  ORAL
     Route: 048
     Dates: start: 20060516
  3. PREDNISONE TAB [Concomitant]
  4. ACYCLOVIR [Concomitant]
  5. BACTRIM DS [Concomitant]
  6. PANTOPRAZOLE SODIUM [Concomitant]

REACTIONS (2)
  - CYTOMEGALOVIRUS INFECTION [None]
  - WHITE BLOOD CELL COUNT DECREASED [None]
